FAERS Safety Report 8274831-4 (Version None)
Quarter: 2012Q2

REPORT INFORMATION
  Report Type: 
  Country: None (occurrence: None)
  Receive Date: 20120411
  Receipt Date: 20120402
  Transmission Date: 20120825
  Serious: Yes (Other)
  Sender: FDA-Public Use
  Company Number: CA-JNJFOC-20120401072

PATIENT
  Sex: Female
  Weight: 66.3 kg

DRUGS (4)
  1. COLACE [Concomitant]
     Route: 065
  2. ORTHO TRI-CYCLEN [Concomitant]
     Route: 065
  3. REMICADE [Suspect]
     Indication: CROHN'S DISEASE
     Route: 042
     Dates: start: 20090909
  4. MACROBID [Concomitant]
     Route: 048

REACTIONS (6)
  - CYSTITIS [None]
  - WEIGHT DECREASED [None]
  - CONSTIPATION [None]
  - VAGINAL DISCHARGE [None]
  - HAEMATOCHEZIA [None]
  - EAR LOBE INFECTION [None]
